FAERS Safety Report 7902388-3 (Version None)
Quarter: 2011Q4

REPORT INFORMATION
  Report Type: 
  Country: None (occurrence: None)
  Receive Date: 20111108
  Receipt Date: 20111103
  Transmission Date: 20120403
  Serious: Yes (Death, Congenital Anomaly)
  Sender: FDA-Public Use
  Company Number: FR-PFIZER INC-2011268831

PATIENT
  Sex: Female

DRUGS (3)
  1. ZOLOFT [Suspect]
     Dosage: 1 DF, 1X/DAY
     Route: 064
     Dates: start: 20010101
  2. AMITRIPTYLINE HCL [Suspect]
     Dosage: 10 GTT, 1X/DAY
     Route: 064
     Dates: start: 20010101
  3. PRIORIX VACCINE [Suspect]
     Dosage: 1 DF, SINGLE
     Dates: start: 20110603

REACTIONS (2)
  - CONGENITAL CENTRAL NERVOUS SYSTEM ANOMALY [None]
  - MATERNAL EXPOSURE DURING PREGNANCY [None]
